FAERS Safety Report 8602249-0 (Version None)
Quarter: 2012Q3

REPORT INFORMATION
  Report Type: 
  Country: None (occurrence: None)
  Receive Date: 20120423
  Receipt Date: 20090323
  Transmission Date: 20120928
  Serious: Yes (Other)
  Sender: FDA-Public Use
  Company Number: PHEH2009US02904

PATIENT
  Sex: Female

DRUGS (5)
  1. ZOLOFT [Concomitant]
  2. DETROL [Concomitant]
  3. FEMARA [Suspect]
     Dosage: INFUSION
  4. SYNTHROID [Concomitant]
  5. CALCIUM CARBONATE [Concomitant]

REACTIONS (4)
  - DIZZINESS [None]
  - NIGHT SWEATS [None]
  - DECREASED APPETITE [None]
  - FATIGUE [None]
